FAERS Safety Report 6390692-2 (Version None)
Quarter: 2009Q4

REPORT INFORMATION
  Report Type: 
  Country: None (occurrence: None)
  Receive Date: 20091006
  Receipt Date: 20090928
  Transmission Date: 20100525
  Serious: Yes (Hospitalization)
  Sender: FDA-Public Use
  Company Number: NL-TEVA-210687ISR

PATIENT
  Sex: Female

DRUGS (9)
  1. PREDNISOLONE [Suspect]
     Dates: start: 20090109, end: 20090208
  2. DEXAMETHASONE 0.5MG TAB [Suspect]
  3. DASATINIB [Suspect]
     Indication: LEUKAEMIA
     Route: 048
     Dates: start: 20080811, end: 20090109
  4. ASPARAGINASE [Suspect]
     Dates: start: 20090109, end: 20090608
  5. CYCLOSPORINE [Suspect]
  6. CYTARABINE [Concomitant]
     Dates: start: 20090109, end: 20090208
  7. VINCRISTINE SULFATE [Concomitant]
     Dates: start: 20090109, end: 20090208
  8. DAUNORUBICIN HYDROCHLORIDE [Concomitant]
     Dates: start: 20090109, end: 20090208
  9. METHOTREXATE SODIUM [Concomitant]
     Dates: start: 20090109, end: 20090208

REACTIONS (3)
  - AMMONIA INCREASED [None]
  - HYPERTENSION [None]
  - SYNCOPE [None]
